FAERS Safety Report 18040254 (Version 1)
Quarter: 2020Q3

REPORT INFORMATION
  Report Type: Spontaneous
  Country: IT (occurrence: IT)
  Receive Date: 20200717
  Receipt Date: 20200717
  Transmission Date: 20201103
  Serious: Yes (Hospitalization)
  Sender: FDA-Public Use
  Company Number: IT-ELI_LILLY_AND_COMPANY-IT202007004796

PATIENT
  Age: 30 Year
  Sex: Male
  Weight: 72 kg

DRUGS (3)
  1. ZYPADHERA [Suspect]
     Active Substance: OLANZAPINE PAMOATE
     Indication: SCHIZOPHRENIA
     Dosage: 405 UG, UNKNOWN
     Route: 030
     Dates: start: 20190724, end: 20200526
  2. ZYPADHERA [Suspect]
     Active Substance: OLANZAPINE PAMOATE
     Indication: SCHIZOPHRENIA
     Dosage: 405 UG, UNKNOWN
     Route: 030
     Dates: start: 20190724, end: 20200526
  3. ZYPADHERA [Suspect]
     Active Substance: OLANZAPINE PAMOATE
     Indication: SCHIZOPHRENIA
     Dosage: 405 UG, UNKNOWN
     Route: 030
     Dates: start: 20190724, end: 20200526

REACTIONS (3)
  - Injection site urticaria [Recovering/Resolving]
  - Pyrexia [Recovering/Resolving]
  - Lymph node pain [Recovering/Resolving]

NARRATIVE: CASE EVENT DATE: 20200526
